FAERS Safety Report 7209753-0 (Version None)
Quarter: 2011Q1

REPORT INFORMATION
  Report Type: 
  Country: None (occurrence: None)
  Receive Date: 20110104
  Receipt Date: 20101228
  Transmission Date: 20110831
  Serious: Yes (Death)
  Sender: FDA-Public Use
  Company Number: GR-ABBOTT-10P-066-0676131-00

PATIENT
  Age: 9 Year
  Sex: Male

DRUGS (1)
  1. DEPAKENE [Suspect]
     Indication: EPILEPSY

REACTIONS (2)
  - PULMONARY OEDEMA [None]
  - HEPATIC STEATOSIS [None]
